FAERS Safety Report 13697452 (Version 1)
Quarter: 2017Q2

REPORT INFORMATION
  Report Type: Spontaneous
  Country: US (occurrence: US)
  Receive Date: 20170628
  Receipt Date: 20170628
  Transmission Date: 20170830
  Serious: Yes (Other)
  Sender: FDA-Public Use
  Company Number: None

PATIENT
  Age: 71 Year
  Sex: Male
  Weight: 86.71 kg

DRUGS (2)
  1. OMEPRAZOLE 40 MG CAPSULE (GENERIC) [Suspect]
     Active Substance: OMEPRAZOLE
     Indication: GASTROOESOPHAGEAL REFLUX DISEASE
     Route: 048
     Dates: start: 20121001, end: 20131107
  2. ESOMEPRAZOLE 40 MG CAPSULE (GENERIC) [Suspect]
     Active Substance: ESOMEPRAZOLE
     Indication: GASTROOESOPHAGEAL REFLUX DISEASE
     Route: 048
     Dates: start: 20150406, end: 20150512

REACTIONS (5)
  - Dysphagia [None]
  - Treatment failure [None]
  - Product substitution issue [None]
  - Condition aggravated [None]
  - Gastrooesophageal reflux disease [None]

NARRATIVE: CASE EVENT DATE: 20150512
